FAERS Safety Report 8828711 (Version 2)
Quarter: 2013Q2

REPORT INFORMATION
  Report Type: Spontaneous
  Country: DE (occurrence: DE)
  Receive Date: 20121008
  Receipt Date: 20130403
  Transmission Date: 20140414
  Serious: Yes (Death)
  Sender: FDA-Public Use
  Company Number: DE-ALEXION-A201201858

PATIENT
  Age: 80 Year
  Sex: Male

DRUGS (6)
  1. SOLIRIS 300MG [Suspect]
     Indication: PAROXYSMAL NOCTURNAL HAEMOGLOBINURIA
     Dosage: 600 MG, QW
     Route: 042
     Dates: start: 20111215, end: 20120125
  2. SOLIRIS 300MG [Suspect]
     Dosage: 900 MG, Q2W
     Route: 042
     Dates: start: 20120213, end: 20120816
  3. XIPAMID [Concomitant]
     Indication: CARDIAC FAILURE
     Dosage: 10 DF, UNK
  4. TOREM [Concomitant]
     Indication: CARDIAC FAILURE
     Dosage: 10 DF, UNK
  5. METOPROLOL [Concomitant]
     Indication: CARDIAC FAILURE
     Dosage: 25 DF, UNK
  6. TRAMADOL [Concomitant]
     Indication: PAIN
     Dosage: 50 DF, UNK

REACTIONS (1)
  - Cardiac disorder [Fatal]
